FAERS Safety Report 9155170 (Version 2)
Quarter: 2013Q1

REPORT INFORMATION
  Report Type: Spontaneous
  Country: IL (occurrence: IL)
  Receive Date: 20130311
  Receipt Date: 20130321
  Transmission Date: 20140127
  Serious: Yes (Hospitalization)
  Sender: FDA-Public Use
  Company Number: IL-NOVOPROD-371622

PATIENT
  Age: 12 Year
  Sex: Male

DRUGS (4)
  1. NORDITROPIN SIMPLEXX [Suspect]
     Indication: GROWTH HORMONE DEFICIENCY
     Dosage: 1 MG, QD
     Route: 065
     Dates: start: 201210, end: 201302
  2. SINGULAIR [Concomitant]
  3. VENTOLIN                           /00139501/ [Concomitant]
  4. SYMBICORT [Concomitant]

REACTIONS (3)
  - Intraocular pressure increased [Not Recovered/Not Resolved]
  - Intracranial pressure increased [Not Recovered/Not Resolved]
  - Epistaxis [Unknown]
